FAERS Safety Report 25041202 (Version 1)
Quarter: 2025Q1

REPORT INFORMATION
  Report Type: Spontaneous
  Country: US (occurrence: US)
  Receive Date: 20250305
  Receipt Date: 20250305
  Transmission Date: 20250409
  Serious: Yes (Hospitalization)
  Sender: ORGANON
  Company Number: US-ORGANON-O2502USA002726

PATIENT
  Age: 71 Year
  Sex: Female

DRUGS (3)
  1. SINGULAIR [Suspect]
     Active Substance: MONTELUKAST SODIUM
     Indication: Asthma
     Dosage: 10 MILLIGRAM, QD (ONCE DAILY IN THE EVENING)
     Route: 048
     Dates: start: 1989
  2. SINGULAIR [Suspect]
     Active Substance: MONTELUKAST SODIUM
     Dosage: 10 MILLIGRAM, QD (ONCE DAILY IN THE EVENING)
     Route: 048
  3. MONTELUKAST SODIUM [Suspect]
     Active Substance: MONTELUKAST SODIUM
     Indication: Asthma
     Route: 048

REACTIONS (7)
  - Oxygen saturation decreased [Unknown]
  - Drug ineffective [Unknown]
  - Dyspnoea [Not Recovered/Not Resolved]
  - Product availability issue [Unknown]
  - Product dose omission issue [Unknown]
  - Product availability issue [Unknown]
  - Product dose omission issue [Unknown]

NARRATIVE: CASE EVENT DATE: 20250201
